FAERS Safety Report 9543763 (Version 2)
Quarter: 2013Q4

REPORT INFORMATION
  Report Type: Spontaneous
  Country: US (occurrence: US)
  Receive Date: 20130923
  Receipt Date: 20131016
  Transmission Date: 20140711
  Serious: Yes (Other)
  Sender: FDA-Public Use
  Company Number: US-BAYER-2013-114608

PATIENT
  Age: 36 Year
  Sex: Female
  Weight: 59 kg

DRUGS (2)
  1. MIRENA [Suspect]
     Indication: CONTRACEPTION
     Dosage: 20 MCG/24HR, CONT
     Route: 015
     Dates: start: 20130711
  2. CLONAZEPAM [Concomitant]
     Dosage: UNK UNK, BID
     Dates: start: 2007

REACTIONS (2)
  - Ischaemic neuropathy [Not Recovered/Not Resolved]
  - Pelvic pain [Not Recovered/Not Resolved]
